FAERS Safety Report 6402161-1 (Version None)
Quarter: 2009Q4

REPORT INFORMATION
  Report Type: 
  Country: None (occurrence: None)
  Receive Date: 20091015
  Receipt Date: 20091005
  Transmission Date: 20100525
  Serious: Yes (Death, Other)
  Sender: FDA-Public Use
  Company Number: CA-ABBOTT-09P-028-0501291-00

PATIENT
  Sex: Male
  Weight: 74.91 kg

DRUGS (1)
  1. HUMIRA [Suspect]
     Indication: RHEUMATOID ARTHRITIS
     Route: 058
     Dates: start: 20080501, end: 20090101

REACTIONS (10)
  - ATRIAL FIBRILLATION [None]
  - BACTERIAL INFECTION [None]
  - BACTERIAL TEST POSITIVE [None]
  - CHOLECYSTITIS [None]
  - CHOLECYSTITIS ACUTE [None]
  - COLON CANCER [None]
  - INTESTINAL OBSTRUCTION [None]
  - PNEUMONIA [None]
  - POST PROCEDURAL INFECTION [None]
  - UROSEPSIS [None]
